FAERS Safety Report 10430268 (Version 1)
Quarter: 2014Q3

REPORT INFORMATION
  Report Type: Spontaneous
  Country: US (occurrence: None)
  Receive Date: 20140903
  Receipt Date: 20140903
  Transmission Date: 20150326
  Serious: Yes (Hospitalization, Disabling)
  Sender: FDA-Public Use
  Company Number: None

PATIENT
  Age: 26 Year
  Sex: Male
  Weight: 108.86 kg

DRUGS (1)
  1. LATUDA [Suspect]
     Active Substance: LURASIDONE HYDROCHLORIDE
     Indication: BIPOLAR I DISORDER
     Dosage: 80 MG, ONE TABLET AT BEDTIME TAKEN BY MOUTH
     Route: 048
     Dates: start: 20130802, end: 20140723

REACTIONS (2)
  - Generalised tonic-clonic seizure [None]
  - Extrapyramidal disorder [None]

NARRATIVE: CASE EVENT DATE: 20140722
